FAERS Safety Report 19765362 (Version 1)
Quarter: 2021Q3

REPORT INFORMATION
  Report Type: Report from Study
  Country: US (occurrence: US)
  Receive Date: 20210830
  Receipt Date: 20210830
  Transmission Date: 20211014
  Serious: No
  Sender: FDA-Public Use
  Company Number: NVSC2021US195256

PATIENT
  Age: 77 Year
  Sex: Male

DRUGS (4)
  1. ISOSORBIDE. [Concomitant]
     Active Substance: ISOSORBIDE
     Indication: CARDIAC DISORDER
     Dosage: UNK, QD
     Route: 048
     Dates: start: 2010
  2. ENTRESTO [Suspect]
     Active Substance: SACUBITRIL\VALSARTAN
     Indication: CARDIAC FAILURE
     Dosage: 1 DF, (49.51 MG), BID
     Route: 048
     Dates: start: 2015
  3. FUROSEMIDE. [Concomitant]
     Active Substance: FUROSEMIDE
     Indication: FLUID RETENTION
     Dosage: 40 MG
     Route: 048
     Dates: start: 20210827
  4. KLOR?CON M20 [Concomitant]
     Active Substance: POTASSIUM CHLORIDE
     Indication: FLUID RETENTION
     Dosage: 20 MEQ, QD
     Route: 048
     Dates: start: 20210827

REACTIONS (4)
  - Abdominal distension [Unknown]
  - Dyspnoea [Unknown]
  - Chest discomfort [Unknown]
  - Fluid retention [Unknown]

NARRATIVE: CASE EVENT DATE: 20210823
